FAERS Safety Report 21231795 (Version 2)
Quarter: 2022Q3

REPORT INFORMATION
  Report Type: Spontaneous
  Country: AU (occurrence: AU)
  Receive Date: 20220819
  Receipt Date: 20220829
  Transmission Date: 20221027
  Serious: Yes (Life-Threatening, Other)
  Sender: FDA-Public Use
  Company Number: AU-PFIZER INC-PV202200040992

PATIENT
  Age: 31 Year
  Sex: Female

DRUGS (1)
  1. METOCLOPRAMIDE HYDROCHLORIDE [Suspect]
     Active Substance: METOCLOPRAMIDE HYDROCHLORIDE
     Dosage: 10 MG
     Route: 042

REACTIONS (2)
  - Circulatory collapse [Recovering/Resolving]
  - Cardiomyopathy acute [Recovering/Resolving]
